FAERS Safety Report 11343811 (Version 2)
Quarter: 2015Q3

REPORT INFORMATION
  Report Type: Report from Study
  Country: DE (occurrence: DE)
  Receive Date: 20150806
  Receipt Date: 20150810
  Transmission Date: 20151125
  Serious: Yes (Death, Hospitalization, Other)
  Sender: FDA-Public Use
  Company Number: PHHY2015DE092656

PATIENT
  Sex: Female
  Weight: 89 kg

DRUGS (7)
  1. AFINITOR [Suspect]
     Active Substance: EVEROLIMUS
     Indication: BREAST CANCER METASTATIC
     Dosage: 5 MG, QD
     Route: 048
     Dates: start: 20141203, end: 20150518
  2. METOPROLOL [Concomitant]
     Active Substance: METOPROLOL
     Indication: HYPERTENSION
     Dosage: 95 MG OR 45 MG (AMBIGOUS) QD
     Route: 065
     Dates: start: 2014
  3. EXEMESTANE. [Concomitant]
     Active Substance: EXEMESTANE
     Indication: BREAST CANCER METASTATIC
     Dosage: UNK
     Route: 048
     Dates: start: 201306, end: 201412
  4. EXEMESTANE. [Concomitant]
     Active Substance: EXEMESTANE
     Dosage: 25 MG, QD
     Route: 048
     Dates: start: 20141203, end: 20150518
  5. IBUFLAM [Suspect]
     Active Substance: IBUPROFEN
     Indication: MUSCULOSKELETAL PAIN
  6. TARGIN [Concomitant]
     Active Substance: NALOXONE HYDROCHLORIDE\OXYCODONE HYDROCHLORIDE
     Indication: PRODUCT USED FOR UNKNOWN INDICATION
     Dosage: 20/10 MG, BID
     Route: 065
     Dates: start: 2014
  7. IBUFLAM [Suspect]
     Active Substance: IBUPROFEN
     Indication: ARTHRALGIA
     Dosage: 600 MG, TID
     Route: 065
     Dates: start: 2012, end: 20150701

REACTIONS (16)
  - Hypotension [Fatal]
  - Generalised oedema [Fatal]
  - Pericardial neoplasm [Fatal]
  - Gastritis [Recovered/Resolved]
  - Metastases to liver [Not Recovered/Not Resolved]
  - General physical health deterioration [Fatal]
  - Pulmonary oedema [Fatal]
  - Oedema [Fatal]
  - Neoplasm [Fatal]
  - Malignant neoplasm progression [Fatal]
  - Vomiting [Recovered/Resolved]
  - Pericardial effusion [Fatal]
  - Duodenitis [Recovered/Resolved]
  - Nausea [Recovered/Resolved]
  - Concomitant disease progression [Fatal]
  - Lung neoplasm malignant [Not Recovered/Not Resolved]

NARRATIVE: CASE EVENT DATE: 20150510
